FAERS Safety Report 17197756 (Version 1)
Quarter: 2019Q4

REPORT INFORMATION
  Report Type: Spontaneous
  Country: US (occurrence: US)
  Receive Date: 20191224
  Receipt Date: 20191224
  Transmission Date: 20200122
  Serious: Yes (Death, Hospitalization)
  Sender: FDA-Public Use
  Company Number: US-TEVA-2019-US-1157508

PATIENT
  Age: 32 Year
  Sex: Male

DRUGS (1)
  1. BUPROPION. [Suspect]
     Active Substance: BUPROPION
     Route: 065

REACTIONS (9)
  - Completed suicide [Fatal]
  - Congestive cardiomyopathy [Unknown]
  - Seizure [Unknown]
  - Mental status changes [Unknown]
  - Overdose [Fatal]
  - Hypotension [Unknown]
  - Ventricular hypokinesia [Unknown]
  - Shock [Unknown]
  - Ejection fraction decreased [Unknown]
